FAERS Safety Report 16999101 (Version 1)
Quarter: 2019Q4

REPORT INFORMATION
  Report Type: Spontaneous
  Country: US (occurrence: US)
  Receive Date: 20191105
  Receipt Date: 20191105
  Transmission Date: 20200122
  Serious: No
  Sender: FDA-Public Use
  Company Number: US-RADIUS HEALTH INC.-2019US003465

PATIENT
  Age: 66 Year
  Sex: Female

DRUGS (1)
  1. TYMLOS [Suspect]
     Active Substance: ABALOPARATIDE
     Indication: OSTEOPOROSIS POSTMENOPAUSAL
     Dosage: 80 MCG, DAILY
     Route: 058
     Dates: start: 201909

REACTIONS (7)
  - Nausea [Unknown]
  - Abdominal pain upper [Unknown]
  - Pain [Unknown]
  - Injection site bruising [Recovering/Resolving]
  - Chills [Unknown]
  - Feeling abnormal [Unknown]
  - Product storage error [Unknown]

NARRATIVE: CASE EVENT DATE: 20190920
